FAERS Safety Report 7778239 (Version 4)
Quarter: 2014Q1

REPORT INFORMATION
  Report Type: Spontaneous
  Country: US (occurrence: US)
  Receive Date: 20110128
  Receipt Date: 20140205
  Transmission Date: 20141002
  Serious: Yes (Hospitalization, Other)
  Sender: FDA-Public Use
  Company Number: US-BAYER-2011-005524

PATIENT
  Age: 33 Year
  Sex: Female
  Weight: 81.63 kg

DRUGS (9)
  1. YAZ [Suspect]
     Indication: CONTRACEPTION
     Dosage: UNK
     Dates: start: 20070316, end: 20091201
  2. YAZ [Suspect]
     Indication: METRORRHAGIA
     Dosage: UNK
     Dates: start: 200703, end: 200708
  3. LEVOTHYROXINE [Concomitant]
  4. SINGULAIR [Concomitant]
  5. SUMATRIPTAN [Concomitant]
  6. HYDROCODONE BITARTRATE [Concomitant]
     Dosage: UNK
     Dates: start: 20090102
  7. DOXYCYCLIN [DOXYCYCLINE] [Concomitant]
     Dosage: UNK
     Dates: start: 20091202
  8. MUPIROCIN [Concomitant]
  9. XOPENEX [Concomitant]

REACTIONS (3)
  - Cholecystitis chronic [None]
  - Gallbladder disorder [None]
  - Pain [None]
